FAERS Safety Report 9191740 (Version 1)
Quarter: 2013Q1

REPORT INFORMATION
  Report Type: Spontaneous
  Country: ES (occurrence: ES)
  Receive Date: 20130326
  Receipt Date: 20130326
  Transmission Date: 20140127
  Serious: Yes (Other)
  Sender: FDA-Public Use
  Company Number: ES-009507513-1303ESP011017

PATIENT
  Age: 3 Year
  Sex: Male

DRUGS (2)
  1. SINGULAIR [Suspect]
     Indication: BRONCHITIS
     Dosage: 4 MG UNA VEZ AL DIA
     Route: 048
     Dates: start: 20120915, end: 20130204
  2. BUDESONIDE [Concomitant]
     Dosage: 200 MICROGRAM, BID
     Route: 055

REACTIONS (1)
  - Sleep terror [Recovered/Resolved]
